FAERS Safety Report 22650845 (Version 1)
Quarter: 2023Q2

REPORT INFORMATION
  Report Type: Spontaneous
  Country: FR (occurrence: FR)
  Receive Date: 20230628
  Receipt Date: 20230628
  Transmission Date: 20230722
  Serious: Yes (Life-Threatening)
  Sender: FDA-Public Use
  Company Number: None

PATIENT
  Age: 72 Year
  Sex: Male

DRUGS (6)
  1. ROCURONIUM [Suspect]
     Active Substance: ROCURONIUM BROMIDE
     Indication: Induction of anaesthesia
     Dosage: 40 MILLIGRAM, 1 TOTAL
     Route: 042
     Dates: start: 20230516, end: 20230516
  2. PROPOFOL [Suspect]
     Active Substance: PROPOFOL
     Indication: Induction of anaesthesia
     Dosage: 150 MILLIGRAM, 1 TOTAL
     Route: 042
     Dates: start: 20230516, end: 20230516
  3. DEXAMETHASONE [Suspect]
     Active Substance: DEXAMETHASONE
     Indication: Induction of anaesthesia
     Dosage: 8 MILLIGRAM, 1 TOTAL
     Route: 042
     Dates: start: 20230516, end: 20230516
  4. SUFENTANIL [Suspect]
     Active Substance: SUFENTANIL
     Indication: Induction of anaesthesia
     Dosage: 20 MICROGRAM, 1 TOTAL
     Route: 042
     Dates: start: 20230516, end: 20230516
  5. KETAMINE [Suspect]
     Active Substance: KETAMINE
     Indication: Induction of anaesthesia
     Dosage: 40 MILLIGRAM, 1 TOTAL
     Route: 042
     Dates: start: 20230516, end: 20230516
  6. DROPERIDOL [Suspect]
     Active Substance: DROPERIDOL
     Indication: Prophylaxis of nausea and vomiting
     Dosage: 1.25 MILLIGRAM, 1 TOTAL
     Route: 042
     Dates: start: 20230516, end: 20230516

REACTIONS (1)
  - Anaphylactic shock [Recovered/Resolved]

NARRATIVE: CASE EVENT DATE: 20230516
